FAERS Safety Report 9158645 (Version 3)
Quarter: 2013Q3

REPORT INFORMATION
  Report Type: Report from Study
  Country: JP (occurrence: JP)
  Receive Date: 20130312
  Receipt Date: 20130708
  Transmission Date: 20140515
  Serious: Yes (Life-Threatening, Hospitalization, Other)
  Sender: FDA-Public Use
  Company Number: JP-CELGENEUS-087-50794-12103726

PATIENT
  Age: 61 Year
  Sex: Female
  Weight: 56 kg

DRUGS (18)
  1. VIDAZA [Suspect]
     Indication: MYELODYSPLASTIC SYNDROME
     Dosage: 75 MILLIGRAM/SQ. METER
     Route: 058
     Dates: start: 20120921, end: 20120927
  2. VIDAZA [Suspect]
     Dosage: 75 MILLIGRAM
     Route: 058
     Dates: start: 20121109, end: 20121115
  3. CYLOCIDE [Suspect]
     Indication: BLAST CELLS PRESENT
     Dosage: 30 MILLIGRAM
     Route: 041
     Dates: start: 20121116, end: 20121203
  4. DIART [Concomitant]
     Indication: PRODUCT USED FOR UNKNOWN INDICATION
     Route: 065
     Dates: start: 20121023, end: 20121109
  5. ALDACTONE A [Concomitant]
     Indication: PRODUCT USED FOR UNKNOWN INDICATION
     Route: 065
     Dates: start: 20121023, end: 20121109
  6. TAKEPRON [Concomitant]
     Indication: PRODUCT USED FOR UNKNOWN INDICATION
     Route: 065
  7. BAKTAR [Concomitant]
     Indication: PRODUCT USED FOR UNKNOWN INDICATION
     Route: 065
  8. DIFLUCAN [Concomitant]
     Indication: PRODUCT USED FOR UNKNOWN INDICATION
     Route: 065
  9. NASEA [Concomitant]
     Indication: PRODUCT USED FOR UNKNOWN INDICATION
     Route: 065
     Dates: start: 20120921
  10. GASMOTIN [Concomitant]
     Indication: PRODUCT USED FOR UNKNOWN INDICATION
     Route: 065
     Dates: start: 20121004, end: 20121029
  11. HANGESHASHITNO [Concomitant]
     Indication: PRODUCT USED FOR UNKNOWN INDICATION
     Route: 065
     Dates: start: 20121011, end: 20121031
  12. BAKUMONDOTO [Concomitant]
     Indication: PRODUCT USED FOR UNKNOWN INDICATION
     Route: 065
     Dates: start: 20121011, end: 20121024
  13. HUSCODE [Concomitant]
     Indication: PRODUCT USED FOR UNKNOWN INDICATION
     Route: 065
     Dates: start: 20121011, end: 20121024
  14. MUCODYNE [Concomitant]
     Indication: PRODUCT USED FOR UNKNOWN INDICATION
     Route: 065
     Dates: start: 20121027, end: 20121108
  15. DIOVAN [Concomitant]
     Indication: PRODUCT USED FOR UNKNOWN INDICATION
     Route: 065
     Dates: start: 20121031
  16. NEOPHAGEN [Concomitant]
     Indication: PRODUCT USED FOR UNKNOWN INDICATION
     Route: 065
     Dates: start: 20121107, end: 20121115
  17. MEROPEN [Concomitant]
     Indication: PRODUCT USED FOR UNKNOWN INDICATION
     Route: 065
     Dates: start: 20121111, end: 20121115
  18. MEROPEN [Concomitant]
     Route: 065
     Dates: start: 20121130, end: 20121207

REACTIONS (4)
  - Klebsiella sepsis [Recovered/Resolved]
  - Klebsiella sepsis [Recovered/Resolved]
  - Pleural effusion [Recovered/Resolved]
  - Hepatic function abnormal [Unknown]
